FAERS Safety Report 7249589-8 (Version None)
Quarter: 2011Q1

REPORT INFORMATION
  Report Type: 
  Country: None (occurrence: None)
  Receive Date: 20110128
  Receipt Date: 20110119
  Transmission Date: 20110831
  Serious: Yes (Hospitalization)
  Sender: FDA-Public Use
  Company Number: US-ASTRAZENECA-2011SE03362

PATIENT
  Age: 62 Year
  Sex: Female

DRUGS (2)
  1. ARIMIDEX [Suspect]
     Indication: BREAST CANCER
     Route: 048
     Dates: start: 20050101, end: 20100101
  2. FASLODEX [Suspect]
     Indication: BREAST CANCER
     Route: 030
     Dates: start: 20101201

REACTIONS (5)
  - FATIGUE [None]
  - INJECTION SITE PAIN [None]
  - REPRODUCTIVE TRACT DISORDER [None]
  - BONE PAIN [None]
  - SURGERY [None]
